FAERS Safety Report 8240540-0 (Version None)
Quarter: 2012Q1

REPORT INFORMATION
  Report Type: 
  Country: None (occurrence: None)
  Receive Date: 20120328
  Receipt Date: 20120315
  Transmission Date: 20120608
  Serious: Yes (Hospitalization)
  Sender: FDA-Public Use
  Company Number: DE-ROCHE-1050366

PATIENT
  Age: 77 Year
  Sex: Female
  Weight: 60.5 kg

DRUGS (6)
  1. SIMVASTATIN [Concomitant]
     Dates: start: 20050201
  2. TILIDINE [Concomitant]
     Dosage: DRUG NAME: TILIDIN
     Dates: start: 20111101
  3. OMEPRAZOLE [Concomitant]
     Dates: start: 20050201
  4. ENALAPRIL MALEATE [Concomitant]
     Dates: start: 20050201
  5. NOVALGIN [Concomitant]
     Dates: start: 20111101
  6. VEMURAFENIB [Suspect]
     Indication: MALIGNANT MELANOMA
     Dosage: LAST DOSE PRIOR TO SAE: 13/MAR/2012
     Route: 048
     Dates: start: 20120109

REACTIONS (1)
  - ABDOMINAL PAIN [None]
